FAERS Safety Report 4354797-X (Version None)
Quarter: 2004Q2

REPORT INFORMATION
  Report Type: 
  Country: None (occurrence: None)
  Receive Date: 20040507
  Receipt Date: 20040224
  Transmission Date: 20050107
  Serious: Yes (Hospitalization, Other)
  Sender: FDA-Public Use
  Company Number: PHNU2004DE00985

PATIENT
  Age: 53 Year
  Sex: Female
  Weight: 53 kg

DRUGS (4)
  1. LAMISIL [Suspect]
     Indication: NAIL TINEA
     Dosage: 250 MG, QD
     Route: 048
     Dates: start: 20031125, end: 20031208
  2. REMERGIL [Concomitant]
  3. L-THYROXIN ^HENNING BERLIN^ [Concomitant]
  4. TRIMIPRAMINE [Concomitant]
     Dosage: UNK, UNK

REACTIONS (7)
  - ABDOMINAL DISCOMFORT [None]
  - ABDOMINAL PAIN LOWER [None]
  - BILIRUBIN CONJUGATED INCREASED [None]
  - C-REACTIVE PROTEIN INCREASED [None]
  - ENTEROCOLITIS [None]
  - GASTROENTERITIS [None]
  - MUCOSAL INFLAMMATION [None]
